FAERS Safety Report 5676432-0 (Version None)
Quarter: 2008Q1

REPORT INFORMATION
  Report Type: 
  Country: None (occurrence: None)
  Receive Date: 20080321
  Receipt Date: 20080313
  Transmission Date: 20080703
  Serious: Yes (Other)
  Sender: FDA-Public Use
  Company Number: BR-PFIZER INC-2008024389

PATIENT
  Sex: Male

DRUGS (5)
  1. LIPITOR [Suspect]
     Route: 048
  2. LIPITOR [Suspect]
     Route: 048
  3. VASTAREL [Concomitant]
  4. TENORETIC 100 [Concomitant]
  5. AAS [Concomitant]

REACTIONS (3)
  - CHEST PAIN [None]
  - LICHENOID KERATOSIS [None]
  - VENOUS OCCLUSION [None]
